FAERS Safety Report 9111180 (Version 1)
Quarter: 2013Q1

REPORT INFORMATION
  Report Type: Spontaneous
  Country: US (occurrence: US)
  Receive Date: 20130219
  Receipt Date: 20130219
  Transmission Date: 20140127
  Serious: No
  Sender: FDA-Public Use
  Company Number: US-BRISTOL-MYERS SQUIBB COMPANY-17184870

PATIENT
  Age: 56 Year
  Sex: Male
  Weight: 87.98 kg

DRUGS (1)
  1. ABATACEPT SUBQ INJECTION 125MG/ML [Suspect]
     Indication: RHEUMATOID ARTHRITIS
     Dosage: LAST DOSE:04DEC2012?EXP DATE:FEB2014
     Dates: start: 20121025

REACTIONS (1)
  - Injection site swelling [Unknown]
